FAERS Safety Report 18177271 (Version 2)
Quarter: 2020Q3

REPORT INFORMATION
  Report Type: Spontaneous
  Country: FR (occurrence: FR)
  Receive Date: 20200821
  Receipt Date: 20200911
  Transmission Date: 20201103
  Serious: Yes (Other)
  Sender: FDA-Public Use
  Company Number: FR-AUROBINDO-AUR-APL-2020-039954

PATIENT
  Age: 25 Year
  Sex: Female
  Weight: 94 kg

DRUGS (8)
  1. DOLIPRANE [Concomitant]
     Active Substance: ACETAMINOPHEN
     Indication: PRODUCT USED FOR UNKNOWN INDICATION
     Dosage: 4 GRAM, ONCE A DAY
     Route: 048
  2. PAROXETINE ARROW 20 MG FILM?COATED TABLETS [Suspect]
     Active Substance: PAROXETINE
     Indication: DEPRESSION
     Dosage: 20 MILLIGRAM, ONCE A DAY
     Route: 048
     Dates: start: 20200713, end: 20200726
  3. ZOPICLON ARROW 7.5 MG FILM COATED TABLET [Suspect]
     Active Substance: ZOPICLONE
     Indication: PRODUCT USED FOR UNKNOWN INDICATION
     Dosage: 7.5 MILLIGRAM, ONCE A DAY
     Route: 048
     Dates: start: 20200716, end: 20200726
  4. LINEZOLIDE [Suspect]
     Active Substance: LINEZOLID
     Indication: CENTRAL NERVOUS SYSTEM INFECTION
     Dosage: 1200 MILLIGRAM, ONCE A DAY
     Route: 041
     Dates: start: 20200712, end: 20200727
  5. CEFOTAXIME [Suspect]
     Active Substance: CEFOTAXIME SODIUM
     Indication: CENTRAL NERVOUS SYSTEM INFECTION
     Dosage: 24 GRAM, ONCE A DAY
     Route: 041
     Dates: start: 20200712, end: 20200724
  6. PREGABALINE MYLAN [Suspect]
     Active Substance: PREGABALIN
     Indication: PAIN
     Dosage: 225 MILLIGRAM, ONCE A DAY
     Route: 048
     Dates: start: 20200716, end: 20200727
  7. PANTOPRAZOLE MYLAN [Suspect]
     Active Substance: PANTOPRAZOLE SODIUM
     Indication: PROPHYLAXIS
     Dosage: 20 MILLIGRAM, ONCE A DAY
     Route: 048
     Dates: start: 20200710, end: 20200726
  8. LOVENOX [Concomitant]
     Active Substance: ENOXAPARIN SODIUM
     Indication: PRODUCT USED FOR UNKNOWN INDICATION
     Dosage: 18000 INTERNATIONAL UNIT, ONCE A DAY
     Route: 058

REACTIONS (1)
  - Hepatocellular injury [Recovering/Resolving]

NARRATIVE: CASE EVENT DATE: 20200721
